FAERS Safety Report 10101835 (Version 1)
Quarter: 2014Q2

REPORT INFORMATION
  Report Type: Spontaneous
  Country: US (occurrence: None)
  Receive Date: 20140422
  Receipt Date: 20140422
  Transmission Date: 20141212
  Serious: Yes (Other)
  Sender: FDA-Public Use
  Company Number: 2014P1003169

PATIENT
  Age: 86 Year
  Sex: Female

DRUGS (1)
  1. SULFAMETHOXAZOLE AND TRIMETHOPRIM [Suspect]
     Indication: URINARY TRACT INFECTION
     Dates: start: 2013, end: 2013

REACTIONS (6)
  - Insomnia [None]
  - Fear [None]
  - Abnormal behaviour [None]
  - Hallucination, visual [None]
  - Disorientation [None]
  - Neurotoxicity [None]
